FAERS Safety Report 7991531-6 (Version None)
Quarter: 2011Q4

REPORT INFORMATION
  Report Type: 
  Country: None (occurrence: None)
  Receive Date: 20111219
  Receipt Date: 20111212
  Transmission Date: 20120403
  Serious: Yes (Life-Threatening)
  Sender: FDA-Public Use
  Company Number: FR-ROCHE-1021502

PATIENT
  Sex: Male
  Weight: 83 kg

DRUGS (3)
  1. IPILIMUMAB [Concomitant]
     Indication: METASTATIC MALIGNANT MELANOMA
     Dates: start: 20110830
  2. DACARBAZINE [Concomitant]
     Indication: METASTATIC MALIGNANT MELANOMA
     Dates: start: 20110830
  3. VEMURAFENIB [Suspect]
     Indication: METASTATIC MALIGNANT MELANOMA
     Route: 048
     Dates: start: 20110830

REACTIONS (1)
  - ADENOCARCINOMA PANCREAS [None]
